FAERS Safety Report 6406176-9 (Version None)
Quarter: 2009Q4

REPORT INFORMATION
  Report Type: 
  Country: None (occurrence: None)
  Receive Date: 20091014
  Receipt Date: 20090930
  Transmission Date: 20100525
  Serious: Yes (Other)
  Sender: FDA-Public Use
  Company Number: 2009AC000027

PATIENT
  Age: 50 Year
  Sex: Male

DRUGS (10)
  1. DIGOXIN [Suspect]
  2. LASIX [Concomitant]
  3. COZAAR [Concomitant]
  4. ALDACTONE [Concomitant]
  5. NAPROSYN [Concomitant]
  6. FISH OIL [Concomitant]
  7. LORTAB [Concomitant]
  8. ARTHROTEC [Concomitant]
  9. XOPENEX [Concomitant]
  10. ALDACTONE [Concomitant]

REACTIONS (25)
  - ANAEMIA [None]
  - ARTHRALGIA [None]
  - BACK PAIN [None]
  - BRONCHITIS [None]
  - CARDIOMYOPATHY [None]
  - CONGESTIVE CARDIOMYOPATHY [None]
  - CONSTIPATION [None]
  - DIABETES MELLITUS [None]
  - DIZZINESS [None]
  - EJECTION FRACTION DECREASED [None]
  - HAEMORRHOIDS [None]
  - HYPERLIPIDAEMIA [None]
  - HYPERTENSION [None]
  - JOINT SWELLING [None]
  - MUSCLE SPASMS [None]
  - MYOCARDIAL INFARCTION [None]
  - OROPHARYNGEAL PAIN [None]
  - POSTNASAL DRIP [None]
  - PULMONARY CONGESTION [None]
  - RADICULOPATHY [None]
  - SLEEP APNOEA SYNDROME [None]
  - UPPER RESPIRATORY TRACT INFECTION [None]
  - VISUAL ACUITY REDUCED [None]
  - WEIGHT DECREASED [None]
  - WHEEZING [None]
